FAERS Safety Report 13950699 (Version 1)
Quarter: 2017Q3

REPORT INFORMATION
  Report Type: Spontaneous
  Country: US (occurrence: US)
  Receive Date: 20170908
  Receipt Date: 20170908
  Transmission Date: 20171128
  Serious: No
  Sender: FDA-Public Use
  Company Number: US-ROCHE-1136102

PATIENT
  Sex: Male

DRUGS (8)
  1. LEVAQUIN [Concomitant]
     Active Substance: LEVOFLOXACIN
  2. CLINDAMYCIN. [Concomitant]
     Active Substance: CLINDAMYCIN
  3. RITUXAN [Suspect]
     Active Substance: RITUXIMAB
     Route: 065
  4. CLARITIN [Concomitant]
     Active Substance: LORATADINE
     Route: 065
  5. RITUXAN [Suspect]
     Active Substance: RITUXIMAB
     Indication: CHRONIC LYMPHOCYTIC LEUKAEMIA
     Route: 065
     Dates: start: 20010427
  6. FLUDARABINE [Concomitant]
     Active Substance: FLUDARABINE PHOSPHATE
  7. ZOVIRAX [Concomitant]
     Active Substance: ACYCLOVIR
  8. PENTOSTATIN. [Concomitant]
     Active Substance: PENTOSTATIN
     Route: 042

REACTIONS (10)
  - Cough [Unknown]
  - Asthenia [Unknown]
  - Decreased appetite [Unknown]
  - Sinus congestion [Unknown]
  - Nausea [Unknown]
  - Cellulitis [Recovering/Resolving]
  - Full blood count decreased [Unknown]
  - Fatigue [Unknown]
  - Dysgeusia [Unknown]
  - Dizziness [Unknown]
